FAERS Safety Report 4947659-8 (Version None)
Quarter: 2006Q1

REPORT INFORMATION
  Report Type: 
  Country: None (occurrence: None)
  Receive Date: 20060317
  Receipt Date: 20060317
  Transmission Date: 20060701
  Serious: Yes (Other)
  Sender: FDA-Public Use
  Company Number: None

PATIENT
  Age: 40 Year
  Sex: Female
  Weight: 81.6475 kg

DRUGS (1)
  1. ONE-A-DAY WOMEN'S VITAMIN A 2500IU  BAYER HEALTHCARE [Suspect]
     Dosage: ONE PILL   ONCE A DAY
     Dates: start: 20030320, end: 20060218

REACTIONS (9)
  - CARDIAC DISORDER [None]
  - DEAFNESS [None]
  - DEPRESSION [None]
  - DIARRHOEA [None]
  - HAEMORRHAGE [None]
  - LIVER DISORDER [None]
  - NIGHT BLINDNESS [None]
  - PAPILLOEDEMA [None]
  - UNEVALUABLE EVENT [None]
